FAERS Safety Report 25629511 (Version 2)
Quarter: 2025Q3

REPORT INFORMATION
  Report Type: Spontaneous
  Country: US (occurrence: US)
  Receive Date: 20250731
  Receipt Date: 20250814
  Transmission Date: 20251021
  Serious: No
  Sender: MERCK SHARP & DOHME LLC
  Company Number: US-009507513-2309750

PATIENT
  Sex: Male
  Weight: 68 kg

DRUGS (19)
  1. SOTATERCEPT [Suspect]
     Active Substance: SOTATERCEPT
  2. SOTATERCEPT [Suspect]
     Active Substance: SOTATERCEPT
  3. SOTATERCEPT [Suspect]
     Active Substance: SOTATERCEPT
  4. SOTATERCEPT [Suspect]
     Active Substance: SOTATERCEPT
  5. TYVASO DPI [Suspect]
     Active Substance: TREPROSTINIL
     Indication: Pulmonary arterial hypertension
     Dosage: 64 MICROGRAM, QID
     Route: 055
     Dates: start: 20240830
  6. VALACYCLOVIR [Concomitant]
     Active Substance: VALACYCLOVIR HYDROCHLORIDE
  7. TYLENOL EXTRA STRENGTH [Concomitant]
     Active Substance: ACETAMINOPHEN
  8. ELIQUIS [Concomitant]
     Active Substance: APIXABAN
  9. PROTONIX [Concomitant]
     Active Substance: PANTOPRAZOLE SODIUM
  10. CLONAZEPAM [Concomitant]
     Active Substance: CLONAZEPAM
  11. OPSUMIT [Concomitant]
     Active Substance: MACITENTAN
  12. CRESTOR [Concomitant]
     Active Substance: ROSUVASTATIN CALCIUM
  13. OXYGEN [Concomitant]
     Active Substance: OXYGEN
  14. BUMETANIDE [Concomitant]
     Active Substance: BUMETANIDE
  15. TACROLIMUS [Concomitant]
     Active Substance: TACROLIMUS
  16. SILDENAFIL CITRATE [Concomitant]
     Active Substance: SILDENAFIL CITRATE
  17. PROZAC [Concomitant]
     Active Substance: FLUOXETINE HYDROCHLORIDE
  18. ASPIRIN [Concomitant]
     Active Substance: ASPIRIN
  19. PREDNISONE [Concomitant]
     Active Substance: PREDNISONE

REACTIONS (1)
  - Epistaxis [Not Recovered/Not Resolved]
